FAERS Safety Report 18908002 (Version 2)
Quarter: 2025Q2

REPORT INFORMATION
  Report Type: Spontaneous
  Country: US (occurrence: US)
  Receive Date: 20210218
  Receipt Date: 20250627
  Transmission Date: 20250716
  Serious: Yes (Hospitalization, Other)
  Sender: AUROBINDO
  Company Number: US-AUROBINDO-AUR-APL-2021-006540

PATIENT
  Age: 26 Year
  Sex: Male

DRUGS (4)
  1. CLONIDINE [Suspect]
     Active Substance: CLONIDINE
     Indication: Detoxification
     Route: 065
  2. NALOXONE HYDROCHLORIDE [Suspect]
     Active Substance: NALOXONE HYDROCHLORIDE
     Indication: Detoxification
     Route: 065
  3. PROPOFOL [Suspect]
     Active Substance: PROPOFOL
     Indication: Detoxification
     Route: 065
  4. NITROUS OXIDE [Suspect]
     Active Substance: NITROUS OXIDE
     Indication: Detoxification
     Route: 065

REACTIONS (2)
  - Pulseless electrical activity [Unknown]
  - Necrotising fasciitis [Unknown]
